FAERS Safety Report 8173773-2 (Version None)
Quarter: 2012Q1

REPORT INFORMATION
  Report Type: 
  Country: None (occurrence: None)
  Receive Date: 20120224
  Receipt Date: 20120214
  Transmission Date: 20120608
  Serious: Yes (Other)
  Sender: FDA-Public Use
  Company Number: JP-2011-12005

PATIENT
  Age: 63 Year
  Sex: Female
  Weight: 53 kg

DRUGS (15)
  1. DOPAMINE HYDROCHLORIDE [Suspect]
     Indication: CARDIAC FAILURE
     Dosage: 360 MG (MILLIGRAM(S), DAILY DOSE, INTRAVENOUS
     Route: 042
     Dates: start: 20111109, end: 20111109
  2. CARVEDILOL [Concomitant]
  3. PIMOBENDAN (PIMOBENDAN) [Concomitant]
  4. HEPARIN SODIUM [Concomitant]
  5. PRIMPERAN INJ [Concomitant]
  6. SAMSCA [Suspect]
     Indication: FLUID RETENTION
     Dosage: 15 MG MILLIGRAM(S), QAM, ORAL
     Route: 048
     Dates: start: 20111105, end: 20111106
  7. FAMOTIDINE [Concomitant]
  8. AMIODARONE HCL [Concomitant]
  9. WARFARIN POTASSIUM (WARFARIN POTASSIUM) [Concomitant]
  10. ALLOPURINOL [Concomitant]
  11. DOBUTREX [Suspect]
     Indication: CARDIAC FAILURE
     Dosage: 360 MG MILLIGRAM (S) DAILY DOSE, IV DRIP
     Route: 041
     Dates: start: 20111105, end: 20111109
  12. LIVALO [Concomitant]
  13. LASIX [Concomitant]
  14. PERINDOPRIL ERBUMINE [Concomitant]
  15. ISOSORBIDE DINITRATE [Concomitant]

REACTIONS (2)
  - HYPERNATRAEMIA [None]
  - THIRST [None]
